FAERS Safety Report 11094061 (Version 1)
Quarter: 2015Q2

REPORT INFORMATION
  Report Type: Spontaneous
  Country: US (occurrence: None)
  Receive Date: 20150428
  Receipt Date: 20150428
  Transmission Date: 20150821
  Serious: Yes (Other)
  Sender: FDA-Public Use
  Company Number: PHEH2014US021008

PATIENT
  Age: 41 Year
  Sex: Male

DRUGS (7)
  1. GILENYA [Suspect]
     Active Substance: FINGOLIMOD HYDROCHLORIDE
     Indication: MULTIPLE SCLEROSIS
     Route: 048
     Dates: start: 20141013
  2. ASPIRIN (ACETYLSALICYLIC ACID) [Concomitant]
     Active Substance: ASPIRIN
  3. OMEPRAZOLE. [Concomitant]
     Active Substance: OMEPRAZOLE
  4. SIMVASTATIN. [Concomitant]
     Active Substance: SIMVASTATIN
  5. VITAMIN D (ERGOCALCIFEROL) [Concomitant]
     Active Substance: ERGOCALCIFEROL
  6. CARBAMAZEPINE. [Concomitant]
     Active Substance: CARBAMAZEPINE
  7. VIT D3 (COLECALCIFEROL) [Concomitant]

REACTIONS (14)
  - Abdominal pain [None]
  - Constipation [None]
  - Headache [None]
  - Blood pressure decreased [None]
  - Heart rate decreased [None]
  - Fatigue [None]
  - Nausea [None]
  - Dizziness [None]
  - Visual brightness [None]
  - Muscular weakness [None]
  - Faeces soft [None]
  - Chromaturia [None]
  - Decreased appetite [None]
  - Muscle spasms [None]

NARRATIVE: CASE EVENT DATE: 20141013
